FAERS Safety Report 20061627 (Version 3)
Quarter: 2021Q4

REPORT INFORMATION
  Report Type: Report from Study
  Country: CO (occurrence: CO)
  Receive Date: 20211112
  Receipt Date: 20211201
  Transmission Date: 20220303
  Serious: Yes (Other)
  Sender: FDA-Public Use
  Company Number: CO-ABBVIE-21K-036-4157538-00

PATIENT
  Sex: Male

DRUGS (3)
  1. VENCLEXTA [Suspect]
     Active Substance: VENETOCLAX
     Indication: Chronic lymphocytic leukaemia
     Route: 048
     Dates: start: 20210516, end: 20211022
  2. VENCLEXTA [Suspect]
     Active Substance: VENETOCLAX
     Route: 048
     Dates: start: 20211110, end: 202111
  3. VENCLEXTA [Suspect]
     Active Substance: VENETOCLAX
     Route: 048
     Dates: start: 202111

REACTIONS (7)
  - Asphyxia [Not Recovered/Not Resolved]
  - Poisoning [Recovering/Resolving]
  - Dyspnoea [Recovering/Resolving]
  - Choking [Recovered/Resolved]
  - Skin discolouration [Recovering/Resolving]
  - Cough [Recovering/Resolving]
  - Choking [Unknown]

NARRATIVE: CASE EVENT DATE: 20210101
